FAERS Safety Report 21402635 (Version 1)
Quarter: 2022Q4

REPORT INFORMATION
  Report Type: Spontaneous
  Country: US (occurrence: US)
  Receive Date: 20221003
  Receipt Date: 20221003
  Transmission Date: 20230112
  Serious: No
  Sender: FDA-Public Use
  Company Number: US-BAYER-2022A133998

PATIENT
  Age: 50 Year
  Sex: Female

DRUGS (4)
  1. ALEVEX [Suspect]
     Active Substance: CAMPHOR (SYNTHETIC)\MENTHOL
     Indication: Myalgia
     Dosage: UNK UNK, TID
     Route: 061
  2. ALEVEX [Suspect]
     Active Substance: CAMPHOR (SYNTHETIC)\MENTHOL
     Indication: Arthralgia
  3. ALEVEX [Suspect]
     Active Substance: CAMPHOR (SYNTHETIC)\MENTHOL
     Indication: Back pain
  4. ALEVE [Suspect]
     Active Substance: NAPROXEN SODIUM
     Indication: Pain
     Dosage: FOR A VERY LONG TIME
     Route: 048
     Dates: end: 20220928

REACTIONS (2)
  - Therapeutic product effect incomplete [Unknown]
  - Therapeutic product effect variable [Unknown]
